FAERS Safety Report 9705737 (Version 2)
Quarter: 2015Q3

REPORT INFORMATION
  Report Type: Spontaneous
  Country: US (occurrence: US)
  Receive Date: 20131122
  Receipt Date: 20150803
  Transmission Date: 20151125
  Serious: No
  Sender: FDA-Public Use
  Company Number: US-GILEAD-2008-0017879

PATIENT
  Age: 60 Year
  Sex: Female

DRUGS (17)
  1. FLUOXETINE [Concomitant]
     Active Substance: FLUOXETINE\FLUOXETINE HYDROCHLORIDE
  2. FOSAMAX [Concomitant]
     Active Substance: ALENDRONATE SODIUM
  3. DIOVAN [Concomitant]
     Active Substance: VALSARTAN
  4. LOVASTIN [Concomitant]
     Active Substance: LOVASTATIN
  5. ALBUTEROL. [Concomitant]
     Active Substance: ALBUTEROL
  6. DAILY VITES [Concomitant]
  7. METFORMIN [Concomitant]
     Active Substance: METFORMIN HYDROCHLORIDE
  8. FLONASE [Concomitant]
     Active Substance: FLUTICASONE PROPIONATE
  9. LETAIRIS [Suspect]
     Active Substance: AMBRISENTAN
     Indication: PULMONARY ARTERIAL HYPERTENSION
     Route: 048
     Dates: start: 20080725
  10. ALCORTIN A [Concomitant]
     Active Substance: ALOE VERA LEAF\HYDROCORTISONE ACETATE\IODOQUINOL
  11. ASPRIN [Concomitant]
     Active Substance: ASPIRIN
  12. PROTONIX [Concomitant]
     Active Substance: PANTOPRAZOLE SODIUM
  13. SINGULAIR [Concomitant]
     Active Substance: MONTELUKAST SODIUM
  14. HCTZ [Concomitant]
     Active Substance: HYDROCHLOROTHIAZIDE
  15. ASTELIN [Concomitant]
     Active Substance: AZELASTINE HYDROCHLORIDE
  16. ADVAIR HFA [Concomitant]
     Active Substance: FLUTICASONE PROPIONATE\SALMETEROL XINAFOATE
  17. MIRALAX [Concomitant]
     Active Substance: POLYETHYLENE GLYCOL 3350

REACTIONS (1)
  - Oedema peripheral [None]
